FAERS Safety Report 16531907 (Version 1)
Quarter: 2019Q3

REPORT INFORMATION
  Report Type: Spontaneous
  Country: US (occurrence: US)
  Receive Date: 20190523
  Receipt Date: 20190523
  Transmission Date: 20191004
  Serious: No
  Sender: FDA-Public Use
  Company Number: None

PATIENT
  Age: 13 Year
  Sex: Male

DRUGS (1)
  1. ZOMACTON [Suspect]
     Active Substance: SOMATROPIN
     Dosage: ?          OTHER FREQUENCY:6 DAYS PER WEEK;?
     Route: 058
     Dates: start: 20190506

REACTIONS (2)
  - Insurance issue [None]
  - Off label use [None]

NARRATIVE: CASE EVENT DATE: 20190523
